FAERS Safety Report 6938062-X (Version None)
Quarter: 2010Q3

REPORT INFORMATION
  Report Type: 
  Country: None (occurrence: None)
  Receive Date: 20100824
  Receipt Date: 20100813
  Transmission Date: 20110219
  Serious: Yes (Other)
  Sender: FDA-Public Use
  Company Number: US-BAYER-201030750NA

PATIENT
  Age: 31 Year
  Sex: Female

DRUGS (2)
  1. MIRENA [Suspect]
     Indication: CONTRACEPTION
     Dosage: FREQUENCY CONTINUOUS
     Route: 015
  2. MIRENA [Suspect]
     Dosage: FREQUENCY CONTINUOUS
     Route: 015
     Dates: start: 20091223, end: 20100201

REACTIONS (6)
  - ABDOMINAL PAIN [None]
  - AMENORRHOEA [None]
  - DEVICE DISLOCATION [None]
  - POST PROCEDURAL HAEMORRHAGE [None]
  - PROCEDURAL PAIN [None]
  - UTERINE INJURY [None]
